FAERS Safety Report 24852983 (Version 1)
Quarter: 2025Q1

REPORT INFORMATION
  Report Type: Spontaneous
  Country: CN (occurrence: CN)
  Receive Date: 20250116
  Receipt Date: 20250116
  Transmission Date: 20250408
  Serious: Yes (Hospitalization, Other)
  Sender: Haleon PLC
  Company Number: CN-HALEON-2221615

PATIENT
  Age: 80 Year
  Sex: Female
  Weight: 52 kg

DRUGS (3)
  1. DICLOFENAC SODIUM [Suspect]
     Active Substance: DICLOFENAC SODIUM
     Indication: Rheumatoid arthritis
     Route: 048
     Dates: start: 20130101
  2. PREDNISONE [Suspect]
     Active Substance: PREDNISONE
     Indication: Product used for unknown indication
  3. HERBALS [Suspect]
     Active Substance: HERBALS
     Indication: Product used for unknown indication

REACTIONS (7)
  - Gastric ulcer [Recovered/Resolved]
  - Decreased appetite [Recovered/Resolved]
  - Melaena [Recovered/Resolved]
  - Abdominal pain [Recovered/Resolved]
  - Chronic gastritis [Recovered/Resolved]
  - Gastrointestinal mucosal disorder [Recovered/Resolved]
  - Vomiting [Recovered/Resolved]

NARRATIVE: CASE EVENT DATE: 20240916
